FAERS Safety Report 10099334 (Version 3)
Quarter: 2015Q3

REPORT INFORMATION
  Report Type: Spontaneous
  Country: US (occurrence: US)
  Receive Date: 20140423
  Receipt Date: 20150814
  Transmission Date: 20151125
  Serious: No
  Sender: FDA-Public Use
  Company Number: US-GILEAD-2013-0070443

PATIENT
  Age: 59 Year
  Sex: Female

DRUGS (13)
  1. TRAMADOL. [Concomitant]
     Active Substance: TRAMADOL
  2. SPIRONOLACTONE. [Concomitant]
     Active Substance: SPIRONOLACTONE
  3. LETAIRIS [Suspect]
     Active Substance: AMBRISENTAN
     Indication: PULMONARY HYPERTENSION
     Dosage: 5 MG, QD
     Route: 048
     Dates: start: 20121003, end: 20121201
  4. LANTUS [Concomitant]
     Active Substance: INSULIN GLARGINE
  5. REMODULIN [Concomitant]
     Active Substance: TREPROSTINIL
  6. LOSARTAN. [Concomitant]
     Active Substance: LOSARTAN
  7. IMURAN [Concomitant]
     Active Substance: AZATHIOPRINE
  8. REVATIO [Concomitant]
     Active Substance: SILDENAFIL CITRATE
  9. SIMVASTATIN. [Concomitant]
     Active Substance: SIMVASTATIN
  10. LETAIRIS [Suspect]
     Active Substance: AMBRISENTAN
     Indication: SYSTEMIC LUPUS ERYTHEMATOSUS
  11. BUMETANIDE. [Concomitant]
     Active Substance: BUMETANIDE
  12. HYDROXYCHLOROQUINE [Concomitant]
     Active Substance: HYDROXYCHLOROQUINE
  13. CARVEDILOL. [Concomitant]
     Active Substance: CARVEDILOL

REACTIONS (1)
  - Anaemia [Unknown]

NARRATIVE: CASE EVENT DATE: 20121101
